FAERS Safety Report 7894891-X (Version None)
Quarter: 2011Q4

REPORT INFORMATION
  Report Type: 
  Country: None (occurrence: None)
  Receive Date: 20111106
  Receipt Date: 20110819
  Transmission Date: 20120403
  Serious: No
  Sender: FDA-Public Use
  Company Number: US-AMGEN-USASP2011042471

PATIENT
  Age: 51 Year
  Sex: Male
  Weight: 108.84 kg

DRUGS (6)
  1. PERCOCET [Concomitant]
  2. FOLIC ACID [Concomitant]
  3. FENOFIBRATE [Concomitant]
  4. DEXILANT [Concomitant]
  5. METHOTREXATE [Concomitant]
  6. ENBREL [Suspect]
     Indication: PRODUCT USED FOR UNKNOWN INDICATION
     Dosage: 50 MG, QWK

REACTIONS (1)
  - EYE INFECTION [None]
